FAERS Safety Report 4279428-9 (Version None)
Quarter: 2004Q1

REPORT INFORMATION
  Report Type: 
  Country: None (occurrence: None)
  Receive Date: 20040127
  Receipt Date: 20030312
  Transmission Date: 20041129
  Serious: Yes (Hospitalization)
  Sender: FDA-Public Use
  Company Number: US-BRISTOL-MYERS SQUIBB COMPANY-12208773

PATIENT
  Age: 64 Year
  Sex: Male
  Weight: 70 kg

DRUGS (3)
  1. CISPLATIN [Suspect]
     Indication: BLADDER CANCER
     Dosage: INITIAL DOSE ON 16-OCT-2002
     Dates: start: 20030212, end: 20030212
  2. PACLITAXEL [Suspect]
     Indication: BLADDER CANCER
     Dosage: INITIAL DOSE ON 16-OCT-2002
     Dates: start: 20030219, end: 20030219
  3. GEMCITABINE [Suspect]
     Indication: BLADDER CANCER
     Dosage: INITIAL DOSE ON 16-OCT-2002
     Dates: start: 20030219, end: 20030219

REACTIONS (1)
  - FEBRILE BONE MARROW APLASIA [None]
